FAERS Safety Report 7797449-6 (Version None)
Quarter: 2011Q4

REPORT INFORMATION
  Report Type: 
  Country: None (occurrence: None)
  Receive Date: 20111005
  Receipt Date: 20111005
  Transmission Date: 20120403
  Serious: Yes (Hospitalization)
  Sender: FDA-Public Use
  Company Number: IT-PFIZER INC-2011228021

PATIENT
  Age: 52 Year
  Sex: Male

DRUGS (2)
  1. EFFEXOR XR [Suspect]
     Indication: DEPRESSION
     Dosage: 150 MG, 1X/DAY
     Route: 048
     Dates: start: 20110612, end: 20110708
  2. SEROQUEL [Suspect]
     Indication: BIPOLAR I DISORDER
     Dosage: 475 MG, DAILY
     Route: 048
     Dates: start: 20110521, end: 20110706

REACTIONS (4)
  - CONSTIPATION [None]
  - SUBILEUS [None]
  - ILEUS PARALYTIC [None]
  - URINARY RETENTION [None]
